FAERS Safety Report 20197215 (Version 1)
Quarter: 2021Q4

REPORT INFORMATION
  Report Type: Spontaneous
  Country: CN (occurrence: None)
  Receive Date: 20211217
  Receipt Date: 20211217
  Transmission Date: 20220303
  Serious: Yes (Hospitalization)
  Sender: FDA-Public Use
  Company Number: CN-ROCHE-2974491

PATIENT
  Age: 49 Year
  Sex: Female
  Weight: 60 kg

DRUGS (4)
  1. PERTUZUMAB [Suspect]
     Active Substance: PERTUZUMAB
     Indication: Invasive ductal breast carcinoma
     Route: 041
     Dates: start: 20211102, end: 20211102
  2. TRASTUZUMAB [Suspect]
     Active Substance: TRASTUZUMAB
     Indication: Invasive ductal breast carcinoma
     Route: 041
     Dates: start: 20211102, end: 20211102
  3. LOBAPLATIN [Suspect]
     Active Substance: LOBAPLATIN
     Indication: Invasive ductal breast carcinoma
     Route: 041
     Dates: start: 20211102, end: 20211102
  4. PACLITAXEL [Suspect]
     Active Substance: PACLITAXEL
     Indication: Invasive ductal breast carcinoma
     Route: 041
     Dates: start: 20211102, end: 20211102

REACTIONS (2)
  - Myelosuppression [Recovering/Resolving]
  - Platelet count decreased [Recovering/Resolving]

NARRATIVE: CASE EVENT DATE: 20211114
